FAERS Safety Report 14235794 (Version 3)
Quarter: 2018Q2

REPORT INFORMATION
  Report Type: Spontaneous
  Country: FR (occurrence: FR)
  Receive Date: 20171129
  Receipt Date: 20180611
  Transmission Date: 20180711
  Serious: Yes (Other)
  Sender: FDA-Public Use
  Company Number: FR-GLAXOSMITHKLINE-FR2017GSK179873

PATIENT
  Sex: Male

DRUGS (2)
  1. FLIXOTIDE [Suspect]
     Active Substance: FLUTICASONE PROPIONATE
     Indication: ASTHMA
     Dosage: 2 PUFF(S), BID
     Route: 055
  2. SINGULAIR [Concomitant]
     Active Substance: MONTELUKAST SODIUM
     Indication: ASTHMA
     Dosage: 1 DF, 1D
     Route: 048

REACTIONS (4)
  - Epiphyses premature fusion [Unknown]
  - Growth accelerated [Unknown]
  - Blood testosterone increased [Unknown]
  - Precocious puberty [Unknown]

NARRATIVE: CASE EVENT DATE: 2017
